FAERS Safety Report 19100906 (Version 2)
Quarter: 2021Q2

REPORT INFORMATION
  Report Type: Spontaneous
  Country: IN (occurrence: IN)
  Receive Date: 20210407
  Receipt Date: 20210420
  Transmission Date: 20210717
  Serious: Yes (Hospitalization, Other)
  Sender: FDA-Public Use
  Company Number: IN-MACLEODS PHARMACEUTICALS US LTD-MAC2021030740

PATIENT

DRUGS (2)
  1. METHYLPREDNISOLONE. [Suspect]
     Active Substance: METHYLPREDNISOLONE
     Indication: ENDOCRINE OPHTHALMOPATHY
     Dosage: UNK, Q.W., PULSE THERAPY
     Route: 042
  2. TRIAMCINOLONE ACETONIDE. [Suspect]
     Active Substance: TRIAMCINOLONE ACETONIDE
     Indication: ENDOCRINE OPHTHALMOPATHY
     Dosage: 1 DOSAGE FORM, SINGLE INJECTION IN THE INFERIOR QUADRANT OF THE RIGHT ORBIT
     Route: 031

REACTIONS (10)
  - Eye abscess [Recovering/Resolving]
  - Eye infection fungal [Recovering/Resolving]
  - Optic nerve compression [Recovering/Resolving]
  - Exposure via contaminated device [Recovering/Resolving]
  - Pupillary reflex impaired [Recovering/Resolving]
  - Aspergillus infection [Recovering/Resolving]
  - Product contamination microbial [Recovering/Resolving]
  - Chorioretinal folds [Recovering/Resolving]
  - Inadequate aseptic technique in use of product [Recovering/Resolving]
  - Exophthalmos [Recovered/Resolved]
